FAERS Safety Report 12948579 (Version 8)
Quarter: 2020Q1

REPORT INFORMATION
  Report Type: Spontaneous
  Country: US (occurrence: US)
  Receive Date: 20161117
  Receipt Date: 20200302
  Transmission Date: 20200409
  Serious: Yes (Other)
  Sender: FDA-Public Use
  Company Number: US-PFIZER INC-2016524135

PATIENT
  Age: 32 Year
  Sex: Female
  Weight: 83 kg

DRUGS (6)
  1. REVATIO [Suspect]
     Active Substance: SILDENAFIL CITRATE
     Dosage: 4 DF, UNK (TAKING 4 TABLETS 3 TIMES A DAY)
  2. REVATIO [Suspect]
     Active Substance: SILDENAFIL CITRATE
     Indication: CARDIAC DISORDER
     Dosage: 80 MG, 3X/DAY
     Dates: start: 20101213, end: 201611
  3. SYMBICORT [Concomitant]
     Active Substance: BUDESONIDE\FORMOTEROL FUMARATE DIHYDRATE
     Indication: ASTHMA
     Dosage: UNK
  4. REVATIO [Suspect]
     Active Substance: SILDENAFIL CITRATE
     Dosage: 75 MG, TWICE A DAY(ALSO REPORTED 20 MG 4 PILLS 2 TIMES A DAY)
  5. ALBUTEROL [SALBUTAMOL] [Concomitant]
     Active Substance: ALBUTEROL
     Indication: ASTHMA
     Dosage: UNK
  6. REVATIO [Suspect]
     Active Substance: SILDENAFIL CITRATE
     Indication: PULMONARY HYPERTENSION
     Dosage: 1 DF, UNK (SHE WAS TAKING 1 PILL)

REACTIONS (16)
  - Nausea [Recovering/Resolving]
  - Weight increased [Unknown]
  - Fatigue [Unknown]
  - Mobility decreased [Not Recovered/Not Resolved]
  - Decreased appetite [Not Recovered/Not Resolved]
  - Heart injury [Unknown]
  - Abdominal discomfort [Unknown]
  - Product use issue [Unknown]
  - Flatulence [Unknown]
  - Food poisoning [Unknown]
  - Movement disorder [Not Recovered/Not Resolved]
  - Off label use [Unknown]
  - Malaise [Unknown]
  - Asthenia [Not Recovered/Not Resolved]
  - Dyspnoea [Unknown]
  - Chest pain [Unknown]

NARRATIVE: CASE EVENT DATE: 20101213
